FAERS Safety Report 8965895 (Version 1)
Quarter: 2012Q4

REPORT INFORMATION
  Report Type: 
  Country: US (occurrence: US)
  Receive Date: 20121217
  Receipt Date: 20121217
  Transmission Date: 20130627
  Serious: No
  Sender: FDA-Public Use
  Company Number: US-ABBOTT-12P-163-0967880-00

PATIENT
  Age: 56 Year
  Sex: Male

DRUGS (2)
  1. TRILIPIX [Suspect]
     Indication: PRODUCT USED FOR UNKNOWN INDICATION
     Dates: start: 2012
  2. ZETIA [Concomitant]
     Indication: PRODUCT USED FOR UNKNOWN INDICATION

REACTIONS (1)
  - Blood creatinine increased [Not Recovered/Not Resolved]
